FAERS Safety Report 9820152 (Version 1)
Quarter: 2013Q4

REPORT INFORMATION
  Report Type: Spontaneous
  Country: US (occurrence: None)
  Receive Date: 20131223
  Receipt Date: 20131223
  Transmission Date: 20140711
  Serious: No
  Sender: FDA-Public Use
  Company Number: 220782

PATIENT
  Age: 58 Year
  Sex: Female

DRUGS (1)
  1. PICATO (0.015%, GEL) [Suspect]
     Indication: PHOTOSENSITIVITY REACTION
     Dosage: 1 IN 1 D
     Dates: start: 20130225

REACTIONS (1)
  - Application site vesicles [None]
